FAERS Safety Report 6940186-8 (Version None)
Quarter: 2010Q3

REPORT INFORMATION
  Report Type: 
  Country: None (occurrence: None)
  Receive Date: 20100825
  Receipt Date: 20100817
  Transmission Date: 20110219
  Serious: Yes (Other)
  Sender: FDA-Public Use
  Company Number: CO-ELI_LILLY_AND_COMPANY-CO201008005493

PATIENT
  Age: 25 Year
  Sex: Female

DRUGS (1)
  1. BYETTA [Suspect]
     Indication: OBESITY
     Dosage: UNK, UNKNOWN

REACTIONS (2)
  - OFF LABEL USE [None]
  - SYNCOPE [None]
